FAERS Safety Report 12912730 (Version 1)
Quarter: 2016Q4

REPORT INFORMATION
  Report Type: Spontaneous
  Country: US (occurrence: US)
  Receive Date: 20161104
  Receipt Date: 20161104
  Transmission Date: 20170207
  Serious: Yes (Other)
  Sender: FDA-Public Use
  Company Number: US-TEVA-709840USA

PATIENT
  Sex: Female
  Weight: 54.93 kg

DRUGS (1)
  1. CARBIDOPA AND LEVODOPA [Suspect]
     Active Substance: CARBIDOPA\LEVODOPA
     Indication: PARKINSON^S DISEASE
     Dosage: 25/100MG

REACTIONS (6)
  - Inappropriate schedule of drug administration [Unknown]
  - Product substitution issue [Unknown]
  - Drug ineffective [Unknown]
  - Adverse event [Unknown]
  - Abasia [Unknown]
  - Muscular weakness [Unknown]
